FAERS Safety Report 9908180 (Version 1)
Quarter: 2013Q2

REPORT INFORMATION
  Report Type: Spontaneous
  Country: US (occurrence: None)
  Receive Date: 20130305
  Receipt Date: 20130305
  Transmission Date: 20140414
  Serious: Yes (Other)
  Sender: FDA-Public Use
  Company Number: 163-21880-12071431

PATIENT
  Age: 62 Year
  Sex: Female
  Weight: 81.19 kg

DRUGS (6)
  1. REVLIMID (LENALIDOMIDE) (CAPSULES) [Suspect]
     Indication: PLASMA CELL MYELOMA
     Dosage: 254 MG, 1 IN 1 D, PO
     Route: 048
     Dates: start: 201106, end: 201109
  2. SYNTHROID (LEVOTHYROXINE SODIUM) (UNKNOWN) [Concomitant]
  3. ASPIRIN (ACETYLSALICYLIC ACID) (UNKNOWN) (ACETYLSALICYLIC ACID) [Concomitant]
  4. MULTIVITAMINS (MULTIVITAMINS) (UNKNOWN) [Concomitant]
  5. PERCOCET (OXYCOCET) (UNKNOWN) [Concomitant]
  6. ZOMETA (ZOLEDRONIC ACID) (UNKNOWN) [Concomitant]

REACTIONS (4)
  - Neuropathy peripheral [None]
  - Musculoskeletal pain [None]
  - Hypoaesthesia oral [None]
  - Pharyngeal hypoaesthesia [None]
